FAERS Safety Report 7965916-8 (Version None)
Quarter: 2011Q4

REPORT INFORMATION
  Report Type: 
  Country: None (occurrence: None)
  Receive Date: 20111208
  Receipt Date: 20111201
  Transmission Date: 20120403
  Serious: Yes (Hospitalization)
  Sender: FDA-Public Use
  Company Number: FR-GLAXOSMITHKLINE-B0766320A

PATIENT
  Sex: Female

DRUGS (2)
  1. CEFUROXIME [Suspect]
     Indication: PRODUCT USED FOR UNKNOWN INDICATION
     Dosage: 250MG TWICE PER DAY
     Route: 048
     Dates: start: 20111020, end: 20111026
  2. PREDNISOLONE [Concomitant]
     Indication: PRODUCT USED FOR UNKNOWN INDICATION
     Route: 048
     Dates: start: 20111020, end: 20111023

REACTIONS (2)
  - GENERAL PHYSICAL HEALTH DETERIORATION [None]
  - PRURIGO [None]
